FAERS Safety Report 7235452-5 (Version None)
Quarter: 2011Q1

REPORT INFORMATION
  Report Type: 
  Country: None (occurrence: None)
  Receive Date: 20110110
  Receipt Date: 20101119
  Transmission Date: 20110831
  Serious: Yes (Life-Threatening, Hospitalization)
  Sender: FDA-Public Use
  Company Number: 2010SA070338

PATIENT
  Age: 71 Year
  Sex: Male

DRUGS (19)
  1. GEMCITABINE [Suspect]
     Indication: NON-SMALL CELL LUNG CANCER STAGE IV
     Dosage: 1250 MILLIGRAM(S)/SQUARE METER;POWDER FOR SOLUTION FOR INFUSION; INTRAVENOUS DRIP; WEEKLY
     Route: 042
     Dates: start: 20101029, end: 20101029
  2. GEMCITABINE [Suspect]
     Indication: NON-SMALL CELL LUNG CANCER STAGE IV
     Dosage: 1250 MILLIGRAM(S)/SQUARE METER;POWDER FOR SOLUTION FOR INFUSION; INTRAVENOUS DRIP; WEEKLY
     Route: 042
     Dates: start: 20101106, end: 20101106
  3. PLASIL (METOCLOPRAMIDE HYDROCHLORIDE) [Concomitant]
  4. LASIX [Concomitant]
  5. MAGNESIUM SULFATE [Concomitant]
  6. NOVOLOG [Concomitant]
  7. DECADRON /CAN/ (DEXAMETHASONE) [Concomitant]
  8. SODIUM PHOSPHATE DIBASIC/SODIOUM PHOSPHATE MONOBASIC (SODIUM PHOSPHATE [Concomitant]
  9. TORADOL [Concomitant]
  10. LANSOPRAZOLE [Concomitant]
  11. KYTRIL [Concomitant]
  12. INSULIN (INSULIN) [Concomitant]
  13. LAEVOLAC ^ROCHE^ (LACTULOSE) [Concomitant]
  14. APREPITANT (APREPITANT) [Concomitant]
  15. LANTUS [Concomitant]
  16. CISPLATIN [Suspect]
     Indication: NON-SMALL CELL LUNG CANCER STAGE IV
     Dosage: 75 MILLIGRAM(S)/SQUARE METER; INTRAVENEOUS DRIP; EVERY CYCLE
     Route: 041
     Dates: start: 20101029, end: 20101029
  17. I.V. SOLUTIONS (I.V. SOLUTIONS) [Concomitant]
  18. CERNEVIT /FRA/ (CERNEVIT /FRA/) [Concomitant]
  19. POTASSIUM CHLORIDE [Concomitant]

REACTIONS (9)
  - NAUSEA [None]
  - DIARRHOEA [None]
  - BONE MARROW TOXICITY [None]
  - STOMATITIS [None]
  - ANAEMIA [None]
  - VOMITING [None]
  - MELAENA [None]
  - HYPERGLYCAEMIA [None]
  - MUCOSAL INFLAMMATION [None]
